FAERS Safety Report 7561685-4 (Version None)
Quarter: 2011Q2

REPORT INFORMATION
  Report Type: 
  Country: None (occurrence: None)
  Receive Date: 20110621
  Receipt Date: 20110408
  Transmission Date: 20111010
  Serious: No
  Sender: FDA-Public Use
  Company Number: US-ASTRAZENECA-2011SE20095

PATIENT
  Age: 46 Year
  Sex: Female
  Weight: 59 kg

DRUGS (4)
  1. RHINOCORT [Suspect]
     Route: 045
  2. PULM FLEXHALER [Concomitant]
  3. PROVENTIL-HFA [Concomitant]
  4. SYNTHROID [Concomitant]

REACTIONS (2)
  - VISION BLURRED [None]
  - NASAL SEPTUM DEVIATION [None]
